FAERS Safety Report 4464646-7 (Version None)
Quarter: 2004Q4

REPORT INFORMATION
  Report Type: 
  Country: None (occurrence: None)
  Receive Date: 20041004
  Receipt Date: 20040927
  Transmission Date: 20050328
  Serious: Yes (Life-Threatening)
  Sender: FDA-Public Use
  Company Number: JP-JNJFOC-20040300227

PATIENT
  Sex: Female
  Weight: 50 kg

DRUGS (6)
  1. REMICADE [Suspect]
     Route: 041
  2. REMICADE [Suspect]
     Route: 041
  3. REMICADE [Suspect]
     Indication: FISTULA
     Route: 041
  4. REMICADE [Suspect]
     Indication: CROHN'S DISEASE
     Route: 041
  5. ROHYPNOL [Concomitant]
  6. ROHYPNOL [Concomitant]
     Indication: INSOMNIA

REACTIONS (5)
  - DRUG EFFECT DECREASED [None]
  - DYSPNOEA [None]
  - EYE REDNESS [None]
  - INFUSION RELATED REACTION [None]
  - SHOCK [None]
